FAERS Safety Report 14205242 (Version 1)
Quarter: 2017Q4

REPORT INFORMATION
  Report Type: Spontaneous
  Country: RU (occurrence: RU)
  Receive Date: 20171120
  Receipt Date: 20171120
  Transmission Date: 20180321
  Serious: Yes (Other)
  Sender: FDA-Public Use
  Company Number: RU-ASTRAZENECA-2017SF17946

PATIENT
  Age: 65 Year
  Sex: Female
  Weight: 83 kg

DRUGS (6)
  1. CARDIOMAGNYL [Concomitant]
     Active Substance: ASPIRIN\MAGNESIUM HYDROXIDE
  2. BISOPROLOL [Concomitant]
     Active Substance: BISOPROLOL
  3. PEKTROL [Concomitant]
     Active Substance: ISOSORBIDE MONONITRATE
  4. BRILINTA [Suspect]
     Active Substance: TICAGRELOR
     Route: 048
  5. TORVACARD [Concomitant]
     Active Substance: ATORVASTATIN CALCIUM
  6. LORISTA H [Concomitant]
     Active Substance: HYDROCHLOROTHIAZIDE\LOSARTAN POTASSIUM

REACTIONS (1)
  - Vascular stent thrombosis [Unknown]
